FAERS Safety Report 20920055 (Version 1)
Quarter: 2022Q2

REPORT INFORMATION
  Report Type: Spontaneous
  Country: US (occurrence: None)
  Receive Date: 20220605
  Receipt Date: 20220605
  Transmission Date: 20220720
  Serious: Yes (Other)
  Sender: FDA-Public Use
  Company Number: None

PATIENT
  Age: 40 Year
  Sex: Female

DRUGS (4)
  1. SAXENDA [Suspect]
     Active Substance: LIRAGLUTIDE
     Indication: Weight decreased
     Dosage: FREQUENCY : DAILY;?OTHER ROUTE : INJECTED IN LOWER ABDOMINAL LIKE INSULIN;?
     Route: 050
     Dates: start: 20220525, end: 20220602
  2. ALLEGRA [Concomitant]
     Active Substance: FEXOFENADINE HYDROCHLORIDE
  3. SYMBICORT [Concomitant]
     Active Substance: BUDESONIDE\FORMOTEROL FUMARATE DIHYDRATE
  4. FLONASE [Concomitant]
     Active Substance: FLUTICASONE PROPIONATE

REACTIONS (6)
  - Depression [None]
  - Anxiety [None]
  - Emotional disorder [None]
  - Gastrointestinal disorder [None]
  - Constipation [None]
  - Intestinal haemorrhage [None]

NARRATIVE: CASE EVENT DATE: 20220602
